FAERS Safety Report 10034572 (Version 2)
Quarter: 2015Q1

REPORT INFORMATION
  Report Type: Spontaneous
  Country: JP (occurrence: JP)
  Receive Date: 20140325
  Receipt Date: 20140325
  Transmission Date: 20150720
  Serious: Yes (Hospitalization, Other)
  Sender: FDA-Public Use
  Company Number: JP-MYLANLABS-2014S1006021

PATIENT
  Age: 24 Year
  Sex: Female

DRUGS (12)
  1. TACROLIMUS. [Suspect]
     Active Substance: TACROLIMUS
     Indication: OFF LABEL USE
     Dosage: 3 MG DAILY
     Route: 065
  2. CARBENIN [Concomitant]
     Active Substance: BETAMIPRON\PANIPENEM
     Indication: EVIDENCE BASED TREATMENT
     Route: 065
  3. TACROLIMUS. [Suspect]
     Active Substance: TACROLIMUS
     Indication: OFF LABEL USE
     Dosage: 1-3 MG/DAY
     Route: 048
  4. FILGRASTIM [Suspect]
     Active Substance: FILGRASTIM
     Indication: NEUTROPENIA
     Dosage: 150-300 MICROGRAM/DAY (2.5-5 MICROGRAM/KG/DAY)
     Route: 042
  5. TACROLIMUS. [Suspect]
     Active Substance: TACROLIMUS
     Indication: SYSTEMIC LUPUS ERYTHEMATOSUS
     Dosage: 3 MG DAILY
     Route: 065
  6. PREDNISOLONE. [Suspect]
     Active Substance: PREDNISOLONE
     Indication: SYSTEMIC LUPUS ERYTHEMATOSUS
     Dosage: 12.5-35 MG/DAY
     Route: 048
  7. CEFEPIME [Concomitant]
     Active Substance: CEFEPIME\CEFEPIME HYDROCHLORIDE
     Indication: EVIDENCE BASED TREATMENT
     Route: 065
  8. TACROLIMUS. [Suspect]
     Active Substance: TACROLIMUS
     Indication: SYSTEMIC LUPUS ERYTHEMATOSUS
     Dosage: 1-3 MG/DAY
     Route: 048
  9. PREDNISOLONE. [Suspect]
     Active Substance: PREDNISOLONE
     Indication: SYSTEMIC LUPUS ERYTHEMATOSUS
     Dosage: 17-80 MG/DAY
     Route: 048
  10. PREDNISOLONE. [Suspect]
     Active Substance: PREDNISOLONE
     Indication: SYSTEMIC LUPUS ERYTHEMATOSUS
     Dosage: 35 MG/DAY
     Route: 048
  11. PREDNISOLONE. [Suspect]
     Active Substance: PREDNISOLONE
     Indication: SYSTEMIC LUPUS ERYTHEMATOSUS
     Dosage: 15 MG DAILY
     Route: 065
  12. MICAFUNGIN [Concomitant]
     Active Substance: MICAFUNGIN
     Indication: EVIDENCE BASED TREATMENT
     Route: 065

REACTIONS (3)
  - Systemic lupus erythematosus [Recovered/Resolved]
  - Febrile neutropenia [Recovered/Resolved]
  - Aspergilloma [Unknown]
